FAERS Safety Report 6164040-7 (Version None)
Quarter: 2009Q2

REPORT INFORMATION
  Report Type: 
  Country: None (occurrence: None)
  Receive Date: 20090422
  Receipt Date: 20090415
  Transmission Date: 20091009
  Serious: Yes (Other)
  Sender: FDA-Public Use
  Company Number: US-AVENTIS-200912665US

PATIENT
  Sex: Female
  Weight: 103 kg

DRUGS (3)
  1. LANTUS [Suspect]
     Route: 058
     Dates: start: 20070505
  2. OPTICLIK GREY [Suspect]
  3. LIPITOR [Concomitant]
     Dosage: DOSE: UNK

REACTIONS (3)
  - DRUG DELIVERY SYSTEM MALFUNCTION [None]
  - HEMIPLEGIA [None]
  - TRANSIENT ISCHAEMIC ATTACK [None]
